FAERS Safety Report 25973077 (Version 2)
Quarter: 2025Q4

REPORT INFORMATION
  Report Type: Spontaneous
  Country: US (occurrence: US)
  Receive Date: 20251029
  Receipt Date: 20251211
  Transmission Date: 20260118
  Serious: No
  Sender: GLAXOSMITHKLINE
  Company Number: US-GSK-US2025139565

PATIENT
  Age: 31 Year
  Sex: Female

DRUGS (4)
  1. BENLYSTA [Suspect]
     Active Substance: BELIMUMAB
     Indication: Product used for unknown indication
     Dosage: UNK
  2. HYDROXYCHLOROQUINE [Concomitant]
     Active Substance: HYDROXYCHLOROQUINE
     Indication: Product used for unknown indication
     Dosage: 200 MG
  3. DULOXETINE [Concomitant]
     Active Substance: DULOXETINE
     Indication: Product used for unknown indication
     Dosage: 30 MG
  4. LYRICA [Concomitant]
     Active Substance: PREGABALIN
     Indication: Product used for unknown indication
     Dosage: 150 MG

REACTIONS (3)
  - Exposure via skin contact [Unknown]
  - Accidental exposure to product [Unknown]
  - Product complaint [Unknown]

NARRATIVE: CASE EVENT DATE: 20251024
